FAERS Safety Report 7584016-2 (Version None)
Quarter: 2011Q2

REPORT INFORMATION
  Report Type: 
  Country: None (occurrence: None)
  Receive Date: 20110630
  Receipt Date: 20110621
  Transmission Date: 20111010
  Serious: Yes (Life-Threatening, Hospitalization)
  Sender: FDA-Public Use
  Company Number: US-EISAI INC-E2080-00174-SPO-US

PATIENT
  Age: 49 Year
  Sex: Female
  Weight: 70 kg

DRUGS (16)
  1. VITAMIN D [Concomitant]
     Dosage: 400 UNITS
     Route: 048
  2. MULTI-VITAMINS [Concomitant]
     Route: 048
  3. DILANTIN [Concomitant]
     Dosage: 100 MG A.M., 200 MG P.M.
     Route: 048
  4. LEVOFLOXACIN [Concomitant]
     Indication: URINARY TRACT INFECTION
     Route: 041
     Dates: start: 20090601, end: 20090601
  5. BANZEL [Suspect]
     Indication: EPILEPSY
     Route: 048
     Dates: start: 20090409, end: 20090415
  6. DULCOLAX [Concomitant]
     Indication: CONSTIPATION
     Route: 054
  7. CLARITIN [Concomitant]
     Route: 048
  8. ALBUTEROL SULFATE AUTOHALER [Concomitant]
     Dosage: 2 PUFFS
     Route: 048
  9. BANZEL [Suspect]
     Route: 048
     Dates: start: 20090416, end: 20090609
  10. CLORAZEPATE DIPOTASSIUM [Concomitant]
     Dosage: 30 MG A.M., 15 MG P.M.
     Route: 048
  11. CRYSELLE [Concomitant]
     Route: 048
  12. ZONISAMIDE [Concomitant]
     Route: 048
  13. BANZEL [Suspect]
     Indication: LENNOX-GASTAUT SYNDROME
  14. TOPAMAX [Concomitant]
     Route: 048
  15. MILK OF MAGNESIA TAB [Concomitant]
     Indication: CONSTIPATION
     Route: 048
  16. LEVOFLOXACIN [Concomitant]
     Route: 048
     Dates: start: 20090601, end: 20090610

REACTIONS (3)
  - HEPATITIS [None]
  - LETHARGY [None]
  - CONVULSION [None]
